FAERS Safety Report 8808819 (Version 1)
Quarter: 2012Q4

REPORT INFORMATION
  Report Type: Spontaneous
  Country: US (occurrence: None)
  Receive Date: 20120920
  Receipt Date: 20120920
  Transmission Date: 20130627
  Serious: Yes (Other)
  Sender: FDA-Public Use
  Company Number: None

PATIENT
  Age: 57 Year
  Sex: Female

DRUGS (3)
  1. IRON DEXTRAN [Suspect]
     Indication: IRON DEFICIENCY ANEMIA
     Dosage: in 50 ml of 0.9% NaCl
     Dates: start: 20120917, end: 20120917
  2. IRON DEXTRAN [Suspect]
     Indication: IRON DEFICIENCY ANEMIA
  3. IRON DEXTRAN [Suspect]
     Indication: IRON DEFICIENCY ANEMIA

REACTIONS (6)
  - Oxygen saturation decreased [None]
  - Chest discomfort [None]
  - Infusion related reaction [None]
  - Back pain [None]
  - Tremor [None]
  - Hypersensitivity [None]
